FAERS Safety Report 26215736 (Version 1)
Quarter: 2025Q4

REPORT INFORMATION
  Report Type: Spontaneous
  Country: CN (occurrence: CN)
  Receive Date: 20251231
  Receipt Date: 20251231
  Transmission Date: 20260118
  Serious: Yes (Other)
  Sender: CHEPLAPHARM
  Company Number: CN-CHEPLA-2025014548

PATIENT
  Age: 14 Year
  Sex: Female
  Weight: 58 kg

DRUGS (6)
  1. OLANZAPINE [Suspect]
     Active Substance: OLANZAPINE
     Indication: Dissociative disorder
     Dosage: OLANZAPINE TABLETS 1.25 MG PO QN?DAILY DOSE: 1.25 MILLIGRAM
     Route: 048
     Dates: start: 20251126
  2. OLANZAPINE [Suspect]
     Active Substance: OLANZAPINE
     Indication: Dissociative disorder
     Dosage: DAILY DOSE: 2.5 MILLIGRAM
     Route: 048
     Dates: start: 20251130, end: 20251205
  3. CYMBALTA [Suspect]
     Active Substance: DULOXETINE HYDROCHLORIDE
     Indication: Anxiety disorder
     Dosage: ENTERIC-COATED CAPSULES. DULOXETINE HYDROCHLORIDE ENTERIC-COATED CAPSULES 20 MG AT 10 AM PO AND 2...
     Route: 048
     Dates: start: 20251126, end: 20251224
  4. PROZAC [Suspect]
     Active Substance: FLUOXETINE HYDROCHLORIDE
     Indication: Depression
     Dosage: ON DECEMBER 3, THE FLUOXETINE DOSE WAS ADJUSTED TO 40?DAILY DOSE: 40 MILLIGRAM
     Route: 048
     Dates: start: 20251126, end: 20251224
  5. PROZAC [Suspect]
     Active Substance: FLUOXETINE HYDROCHLORIDE
     Indication: Depression
     Dosage: DULOXETINE HYDROCHLORIDE CAPSULES 20 MG QM PO.?DAILY DOSE: 20 MILLIGRAM
     Route: 048
     Dates: start: 20251126
  6. REMERON [Suspect]
     Active Substance: MIRTAZAPINE
     Indication: Depression
     Dosage: DAILY DOSE: 15 MILLIGRAM
     Route: 048
     Dates: start: 20251206, end: 20251224

REACTIONS (6)
  - Epilepsy [Recovered/Resolved]
  - Epilepsy [Not Recovered/Not Resolved]
  - Nausea [Recovered/Resolved]
  - Vomiting [Unknown]
  - Dizziness [Recovered/Resolved]
  - Off label use [Recovered/Resolved]

NARRATIVE: CASE EVENT DATE: 20251126
